FAERS Safety Report 14423422 (Version 1)
Quarter: 2018Q1

REPORT INFORMATION
  Report Type: Spontaneous
  Country: BE (occurrence: US)
  Receive Date: 20180120
  Receipt Date: 20180120
  Transmission Date: 20180509
  Serious: Yes (Hospitalization)
  Sender: FDA-Public Use
  Company Number: None

PATIENT
  Age: 86 Year
  Sex: Male
  Weight: 60 kg

DRUGS (3)
  1. IFOSFAMIDE. [Suspect]
     Active Substance: IFOSFAMIDE
     Dates: end: 20171010
  2. CISPLATIN. [Suspect]
     Active Substance: CISPLATIN
     Dates: end: 20171010
  3. TAXOL [Suspect]
     Active Substance: PACLITAXEL
     Dates: end: 20171010

REACTIONS (1)
  - Epilepsy [None]

NARRATIVE: CASE EVENT DATE: 20171210
